FAERS Safety Report 23078974 (Version 1)
Quarter: 2023Q4

REPORT INFORMATION
  Report Type: Spontaneous
  Country: US (occurrence: None)
  Receive Date: 20231017
  Receipt Date: 20231017
  Transmission Date: 20240110
  Serious: Yes (Life-Threatening, Hospitalization, Disabling, Other)
  Sender: FDA-Public Use
  Company Number: None

PATIENT
  Age: 27 Year
  Sex: Male
  Weight: 81 kg

DRUGS (1)
  1. PROPECIA [Suspect]
     Active Substance: FINASTERIDE
     Indication: Alopecia
     Dates: start: 20000423, end: 20000501

REACTIONS (6)
  - Mental disorder [None]
  - Suicidal ideation [None]
  - Fear [None]
  - Erectile dysfunction [None]
  - Obsessive-compulsive disorder [None]
  - Impaired quality of life [None]

NARRATIVE: CASE EVENT DATE: 20000501
